FAERS Safety Report 5313414-2 (Version None)
Quarter: 2007Q2

REPORT INFORMATION
  Report Type: 
  Country: None (occurrence: None)
  Receive Date: 20070501
  Receipt Date: 20070423
  Transmission Date: 20071010
  Serious: Yes (Hospitalization)
  Sender: FDA-Public Use
  Company Number: JP-BAYER-200710303BYL

PATIENT
  Age: 76 Year
  Sex: Female

DRUGS (2)
  1. AVELOX [Suspect]
     Indication: BRONCHITIS
     Dosage: TOTAL DAILY DOSE: 400 MG  UNIT DOSE: 400 MG
     Route: 048
     Dates: start: 20070320, end: 20070404
  2. MUCOSOLVAN [Concomitant]
     Indication: BRONCHITIS
     Route: 048
     Dates: start: 20070320

REACTIONS (1)
  - INTERSTITIAL LUNG DISEASE [None]
